FAERS Safety Report 18724301 (Version 2)
Quarter: 2022Q2

REPORT INFORMATION
  Report Type: Spontaneous
  Country: US (occurrence: US)
  Receive Date: 20210111
  Receipt Date: 20220401
  Transmission Date: 20220721
  Serious: No
  Sender: FDA-Public Use
  Company Number: US-PFIZER INC-2020490668

PATIENT
  Age: 69 Year
  Sex: Female
  Weight: 82.54 kg

DRUGS (8)
  1. IBRANCE [Suspect]
     Active Substance: PALBOCICLIB
     Indication: Breast cancer female
     Dosage: UNK
     Dates: start: 201504
  2. IBRANCE [Suspect]
     Active Substance: PALBOCICLIB
     Dosage: 125 MG, CYCLIC (ONCE A DAY FOR 21 DAYS THEN 7 DAYS OFF)
     Route: 048
     Dates: start: 20201117
  3. IBRANCE [Suspect]
     Active Substance: PALBOCICLIB
     Dosage: 125 MG, CYCLIC (QD FOR 21 DAYS THEN 7 DAYS OFF)
     Route: 048
     Dates: start: 20211117
  4. EXEMESTANE [Concomitant]
     Active Substance: EXEMESTANE
  5. ALPRAZOLAM [Concomitant]
     Active Substance: ALPRAZOLAM
  6. TRAMADOL [Concomitant]
     Active Substance: TRAMADOL
  7. GABAPENTIN [Concomitant]
     Active Substance: GABAPENTIN
  8. CALCIUM [Concomitant]
     Active Substance: CALCIUM
     Dosage: UNK

REACTIONS (5)
  - Nausea [Not Recovered/Not Resolved]
  - Vomiting [Not Recovered/Not Resolved]
  - Psoriasis [Not Recovered/Not Resolved]
  - Product dose omission issue [Unknown]
  - Product dose omission in error [Not Recovered/Not Resolved]

NARRATIVE: CASE EVENT DATE: 20190801
